FAERS Safety Report 20091187 (Version 2)
Quarter: 2022Q2

REPORT INFORMATION
  Report Type: Spontaneous
  Country: JP (occurrence: JP)
  Receive Date: 20211119
  Receipt Date: 20220510
  Transmission Date: 20220721
  Serious: No
  Sender: FDA-Public Use
  Company Number: JP-ELI_LILLY_AND_COMPANY-JP202111006829

PATIENT
  Age: 88 Year
  Sex: Female

DRUGS (7)
  1. DULOXETINE HYDROCHLORIDE [Suspect]
     Active Substance: DULOXETINE HYDROCHLORIDE
     Indication: Back pain
     Dosage: 20 MG, DAILY
     Route: 048
     Dates: start: 20211105, end: 20211105
  2. PREDNISOLONE [Concomitant]
     Active Substance: PREDNISOLONE
     Indication: Rheumatoid arthritis
     Dosage: 3 DOSAGE FORM, DAILY
     Route: 048
     Dates: start: 20200310
  3. DIOVAN [Concomitant]
     Active Substance: VALSARTAN
     Indication: Hypertension
     Dosage: 1 DOSAGE FORM, DAILY
     Route: 048
     Dates: start: 20220310
  4. PRAVASTATIN SODIUM [Concomitant]
     Active Substance: PRAVASTATIN SODIUM
     Indication: Hyperlipidaemia
     Dosage: 1 DOSAGE FORM, DAILY
     Route: 048
     Dates: start: 20220310
  5. VITAMINS NOS [Concomitant]
     Active Substance: VITAMINS
     Indication: Lumbar spinal stenosis
     Dosage: 2 DOSAGE FORM, TID
     Route: 048
     Dates: start: 20200707
  6. LYRICA [Concomitant]
     Active Substance: PREGABALIN
     Indication: Sciatica
     Dosage: 2 DOSAGE FORM, BID
     Route: 048
     Dates: start: 20200707
  7. ETODOLAC [Concomitant]
     Active Substance: ETODOLAC
     Indication: Rheumatoid arthritis
     Dosage: 2 DOSAGE FORM, BID
     Dates: start: 20200222

REACTIONS (1)
  - Subcutaneous haematoma [Recovered/Resolved]

NARRATIVE: CASE EVENT DATE: 20211105
